FAERS Safety Report 6916924-7 (Version None)
Quarter: 2010Q3

REPORT INFORMATION
  Report Type: 
  Country: None (occurrence: None)
  Receive Date: 20100810
  Receipt Date: 20100802
  Transmission Date: 20110219
  Serious: Yes (Hospitalization)
  Sender: FDA-Public Use
  Company Number: US-JNJFOC-20100801002

PATIENT
  Sex: Female
  Weight: 56.7 kg

DRUGS (7)
  1. DURAGESIC-100 [Suspect]
     Indication: PAIN
     Route: 062
  2. PULMICORT [Suspect]
     Indication: MULTIPLE ALLERGIES
     Route: 055
  3. FENTANYL-100 [Suspect]
     Indication: PAIN
     Route: 062
  4. BETIMOL [Concomitant]
     Indication: GLAUCOMA
     Route: 047
  5. ALPRAZOLAM [Concomitant]
     Indication: ANXIETY
     Route: 048
  6. UNSPECIFIED NEBULIZER [Concomitant]
     Indication: ASTHMA
     Route: 055
  7. UNSPECIFIED NEBULIZER [Concomitant]
     Indication: MULTIPLE ALLERGIES
     Route: 055

REACTIONS (9)
  - ARTHRITIS [None]
  - ASTHMA [None]
  - CATARACT [None]
  - CONDITION AGGRAVATED [None]
  - GLAUCOMA [None]
  - HYPERTENSION [None]
  - MOBILITY DECREASED [None]
  - PAIN [None]
  - WEIGHT INCREASED [None]
